FAERS Safety Report 10376001 (Version 2)
Quarter: 2014Q3

REPORT INFORMATION
  Report Type: Spontaneous
  Country: US (occurrence: US)
  Receive Date: 20140811
  Receipt Date: 20140911
  Transmission Date: 20150326
  Serious: Yes (Death, Hospitalization, Other)
  Sender: FDA-Public Use
  Company Number: US-B.I. PHARMACEUTICALS,INC./RIDGEFIELD-2014-BI-35714BP

PATIENT
  Age: 60 Year
  Sex: Female

DRUGS (2)
  1. ASPIRIN. [Concomitant]
     Active Substance: ASPIRIN
     Indication: PRODUCT USED FOR UNKNOWN INDICATION
     Dosage: 81 MG
     Route: 065
  2. PRADAXA [Suspect]
     Active Substance: DABIGATRAN ETEXILATE MESYLATE
     Indication: ATRIAL FIBRILLATION
     Dosage: 150 MG
     Route: 065

REACTIONS (8)
  - Gastrointestinal haemorrhage [Fatal]
  - Acute respiratory failure [Fatal]
  - Coagulopathy [Unknown]
  - Thrombocytopenia [Unknown]
  - Embolic stroke [Fatal]
  - Renal failure acute [Fatal]
  - Haemorrhagic anaemia [Unknown]
  - Septic shock [Fatal]

NARRATIVE: CASE EVENT DATE: 20130130
